FAERS Safety Report 5688351-4 (Version None)
Quarter: 2008Q1

REPORT INFORMATION
  Report Type: 
  Country: None (occurrence: None)
  Receive Date: 20080328
  Receipt Date: 20080328
  Transmission Date: 20080703
  Serious: No
  Sender: FDA-Public Use
  Company Number: None

PATIENT
  Age: 50 Year
  Sex: Male

DRUGS (1)
  1. RANOLAZINE [Suspect]
     Dosage: 500MG BID PO
     Route: 048
     Dates: start: 20080208, end: 20080226

REACTIONS (4)
  - DIZZINESS [None]
  - DRY MOUTH [None]
  - ELECTROCARDIOGRAM QT PROLONGED [None]
  - PALPITATIONS [None]
